FAERS Safety Report 25940239 (Version 4)
Quarter: 2025Q4

REPORT INFORMATION
  Report Type: Spontaneous
  Country: AR (occurrence: AR)
  Receive Date: 20251020
  Receipt Date: 20251211
  Transmission Date: 20260117
  Serious: No
  Sender: PFIZER
  Company Number: AR-PFIZER INC-202500204976

PATIENT
  Age: 16 Year
  Sex: Male

DRUGS (1)
  1. GENOTROPIN [Suspect]
     Active Substance: SOMATROPIN
     Indication: Growth hormone deficiency
     Dosage: 1.8 MG, 7 TIMES PER WEEK
     Dates: start: 20240610

REACTIONS (4)
  - Device physical property issue [Unknown]
  - Device mechanical issue [Unknown]
  - Device defective [Unknown]
  - Device safety feature issue [Unknown]
